FAERS Safety Report 5644114-7 (Version None)
Quarter: 2008Q1

REPORT INFORMATION
  Report Type: 
  Country: None (occurrence: None)
  Receive Date: 20080226
  Receipt Date: 20080212
  Transmission Date: 20080703
  Serious: Yes (Life-Threatening, Hospitalization)
  Sender: FDA-Public Use
  Company Number: B0509235A

PATIENT
  Age: 67 Year
  Sex: Male

DRUGS (8)
  1. AVANDAMET [Suspect]
     Indication: TYPE 2 DIABETES MELLITUS
     Dosage: ORAL
     Route: 048
     Dates: start: 20071005, end: 20071105
  2. PANTOPRAZOLE (FORMULATION UNKNOWN) (PANTOPRAZOLE) [Suspect]
     Dosage: ORAL
     Route: 048
     Dates: start: 20071023, end: 20071105
  3. FLECAINIDE ACETATE [Concomitant]
  4. GLICLAZIDE [Concomitant]
  5. BENFLUOREX HYDROCHLORIDE [Concomitant]
  6. LOGIMAX [Concomitant]
  7. VALSARTAN AND HYDROCHLOROTHIAZIDE [Concomitant]
  8. PRAVASTATIN SODIUM [Concomitant]

REACTIONS (6)
  - CARDIAC ENZYMES INCREASED [None]
  - CARDIAC FAILURE [None]
  - HEPATIC FAILURE [None]
  - HEPATITIS ACUTE [None]
  - HEPATOTOXICITY [None]
  - ISCHAEMIC HEPATITIS [None]
